APPROVED DRUG PRODUCT: EXEMESTANE
Active Ingredient: EXEMESTANE
Strength: 25MG
Dosage Form/Route: TABLET;ORAL
Application: A077431 | Product #001
Applicant: HIKMA PHARMACEUTICALS USA INC
Approved: Apr 1, 2011 | RLD: No | RS: No | Type: DISCN